FAERS Safety Report 8565341-5 (Version None)
Quarter: 2012Q3

REPORT INFORMATION
  Report Type: 
  Country: None (occurrence: None)
  Receive Date: 20120803
  Receipt Date: 20120112
  Transmission Date: 20120928
  Serious: Yes (Other)
  Sender: FDA-Public Use
  Company Number: US-ROCHE-1095566

PATIENT
  Sex: Female
  Weight: 57 kg

DRUGS (7)
  1. PREDNISONE [Concomitant]
     Route: 065
  2. ALBUTEROL [Concomitant]
     Route: 065
  3. XOLAIR [Suspect]
     Indication: ASTHMA
     Route: 065
  4. SYMBICORT [Concomitant]
     Route: 065
  5. ALVESCO [Concomitant]
     Route: 065
  6. SINGULAIR [Concomitant]
     Route: 065
  7. PULMICORT [Concomitant]
     Route: 065

REACTIONS (2)
  - TACHYCARDIA [None]
  - ADVERSE DRUG REACTION [None]
